FAERS Safety Report 17796718 (Version 3)
Quarter: 2020Q2

REPORT INFORMATION
  Report Type: Report from Study
  Country: None (occurrence: US)
  Receive Date: 20200518
  Receipt Date: 20200617
  Transmission Date: 20200714
  Serious: Yes (Hospitalization, Other)
  Sender: FDA-Public Use
  Company Number: US-ABBVIE-20P-163-3408188-00

PATIENT
  Age: 77 Year
  Sex: Male

DRUGS (2)
  1. IMBRUVICA [Suspect]
     Active Substance: IBRUTINIB
     Indication: CHRONIC LYMPHOCYTIC LEUKAEMIA
     Route: 048
     Dates: start: 20200501
  2. IMBRUVICA [Suspect]
     Active Substance: IBRUTINIB
     Route: 048
     Dates: start: 20200501

REACTIONS (6)
  - Dehydration [Unknown]
  - Condition aggravated [Unknown]
  - Atrial fibrillation [Unknown]
  - Heart rate irregular [Unknown]
  - Heart rate increased [Unknown]
  - Confusional state [Unknown]

NARRATIVE: CASE EVENT DATE: 2020
